FAERS Safety Report 4872693-6 (Version None)
Quarter: 2006Q1

REPORT INFORMATION
  Report Type: 
  Country: None (occurrence: None)
  Receive Date: 20060103
  Receipt Date: 20051220
  Transmission Date: 20060701
  Serious: Yes (Other)
  Sender: FDA-Public Use
  Company Number: S05-USA-05286-01

PATIENT

DRUGS (2)
  1. LEXAPRO [Suspect]
  2. ADDERALL 10 [Suspect]

REACTIONS (1)
  - BLOOD PRESSURE INCREASED [None]
